FAERS Safety Report 15840231 (Version 1)
Quarter: 2019Q1

REPORT INFORMATION
  Report Type: Report from Study
  Country: GB (occurrence: GB)
  Receive Date: 20190117
  Receipt Date: 20190117
  Transmission Date: 20190417
  Serious: Yes (Hospitalization)
  Sender: FDA-Public Use
  Company Number: GB-CELLTRION INC.-2017GB015872

PATIENT

DRUGS (8)
  1. METRONIDAZOLE. [Concomitant]
     Active Substance: METRONIDAZOLE
     Indication: WHITE BLOOD CELL COUNT INCREASED
     Dosage: 400 MG
     Route: 048
     Dates: start: 20171112, end: 20171119
  2. MORPHINE SULPHATE BP [Concomitant]
     Indication: PAIN
     Dosage: 10 MG
     Route: 048
     Dates: start: 20171110, end: 20171127
  3. CO-AMOXICLAV                       /00756801/ [Concomitant]
     Active Substance: AMOXICILLIN\CLAVULANIC ACID
     Indication: C-REACTIVE PROTEIN INCREASED
     Dosage: 625 MG
     Route: 048
     Dates: start: 20171112, end: 20171119
  4. INFLECTRA [Suspect]
     Active Substance: INFLIXIMAB-DYYB
     Indication: COLITIS ULCERATIVE
     Dosage: 400 MG, ^8 WEEKLY^
     Route: 065
     Dates: start: 20160122, end: 20170427
  5. VEDOLIZUMAB RECOMBINANT [Concomitant]
     Active Substance: VEDOLIZUMAB
     Indication: COLITIS ULCERATIVE
     Dosage: UNK
     Route: 042
     Dates: start: 20170515, end: 20170914
  6. CO-AMOXICLAV                       /00756801/ [Concomitant]
     Active Substance: AMOXICILLIN\CLAVULANIC ACID
     Indication: WHITE BLOOD CELL COUNT INCREASED
     Dosage: 625 MG
     Route: 042
     Dates: start: 20171112, end: 20171119
  7. METRONIDAZOLE. [Concomitant]
     Active Substance: METRONIDAZOLE
     Indication: C-REACTIVE PROTEIN INCREASED
     Dosage: 400 MG
     Route: 042
  8. LOPERAMIDE [Concomitant]
     Active Substance: LOPERAMIDE
     Dosage: (GENERAL PHYSICIAN TO REVIEW) 2 MG
     Route: 048
     Dates: start: 20171112

REACTIONS (2)
  - Colitis ulcerative [Recovering/Resolving]
  - Condition aggravated [Recovering/Resolving]

NARRATIVE: CASE EVENT DATE: 20171109
